FAERS Safety Report 10216132 (Version 2)
Quarter: 2014Q3

REPORT INFORMATION
  Report Type: Spontaneous
  Country: DK (occurrence: DE)
  Receive Date: 20140604
  Receipt Date: 20140722
  Transmission Date: 20150326
  Serious: Yes (Death)
  Sender: FDA-Public Use
  Company Number: DE-FRI-1000067818

PATIENT
  Age: 49 Year
  Sex: Male
  Weight: 100 kg

DRUGS (1)
  1. CITALOPRAM [Suspect]
     Active Substance: CITALOPRAM HYDROBROMIDE
     Indication: DEPRESSION
     Dosage: 20 MG
     Route: 048
     Dates: end: 20140504

REACTIONS (4)
  - Completed suicide [Fatal]
  - Condition aggravated [Fatal]
  - Restlessness [Fatal]
  - Asphyxia [Fatal]

NARRATIVE: CASE EVENT DATE: 20140507
